FAERS Safety Report 5368263-6 (Version None)
Quarter: 2007Q2

REPORT INFORMATION
  Report Type: 
  Country: None (occurrence: None)
  Receive Date: 20070620
  Receipt Date: 20070607
  Transmission Date: 20071010
  Serious: Yes (Other)
  Sender: FDA-Public Use
  Company Number: 234697K07USA

PATIENT
  Age: 58 Year
  Sex: Female
  Weight: 60.782 kg

DRUGS (6)
  1. REBIF [Suspect]
     Indication: MULTIPLE SCLEROSIS
     Dosage: 44 MCG, 3 IN 1 WEEKS, SUBCUTANEOUS
     Route: 058
     Dates: start: 20021209
  2. AMBIEN CR [Suspect]
     Dates: start: 20060101, end: 20060101
  3. ESTROGEN (ESTROGENS) [Concomitant]
  4. CLONIDINE [Concomitant]
  5. HYDROCHLOROTHIAZIDE [Concomitant]
  6. BISOPROLOL FUMARATE [Concomitant]

REACTIONS (3)
  - CONVULSION [None]
  - INSOMNIA [None]
  - LOSS OF CONSCIOUSNESS [None]
